FAERS Safety Report 9820386 (Version 1)
Quarter: 2013Q4

REPORT INFORMATION
  Report Type: Spontaneous
  Country: US (occurrence: None)
  Receive Date: 20131028
  Receipt Date: 20131028
  Transmission Date: 20140711
  Serious: Yes (Other)
  Sender: FDA-Public Use
  Company Number: 2013US001514

PATIENT
  Sex: 0

DRUGS (11)
  1. ICLUSIG [Suspect]
     Indication: CHRONIC MYELOID LEUKAEMIA
     Route: 048
     Dates: start: 20130118
  2. MIRALAX (MACROGOL) [Concomitant]
  3. ACETAMINOPHEN ER (ACETAMINOPHEN) [Concomitant]
  4. OMEPRAZOLE MAGNESIUM (OMEPRAZOLE MAGNESIUM) [Concomitant]
  5. CITALOPRAM (CITALOPRAM) [Concomitant]
  6. AMLODIPINE (AMLODIPINE) [Concomitant]
  7. HYDROCODONE W/ACETAMINOPHEN (HYDROCODONE BITARTRATE, PARACETAMOL) [Concomitant]
  8. TRAMADOL HYDROCHLORIDE (TRAMADOL HYDROCHLORIDE) [Concomitant]
  9. FLUCONAZOLE (FLUCONAZOLE) [Concomitant]
  10. ALLOPURINOL (ALLOPURINOL) [Concomitant]
  11. CIPROFLOXACIN (CIPROFLOXACIN) [Concomitant]

REACTIONS (2)
  - Pyrexia [None]
  - Asthenia [None]
